FAERS Safety Report 12275881 (Version 1)
Quarter: 2016Q2

REPORT INFORMATION
  Report Type: Spontaneous
  Country: US (occurrence: US)
  Receive Date: 20160418
  Receipt Date: 20160418
  Transmission Date: 20160815
  Serious: Yes (Other)
  Sender: FDA-Public Use
  Company Number: US-BEH-2016061072

PATIENT
  Sex: Male
  Weight: 90 kg

DRUGS (21)
  1. OLANZAPINE. [Concomitant]
     Active Substance: OLANZAPINE
  2. COMPAZINE [Concomitant]
     Active Substance: PROCHLORPERAZINE MALEATE
  3. PROMETHAZINE [Concomitant]
     Active Substance: PROMETHAZINE\PROMETHAZINE HYDROCHLORIDE
  4. ZOFRAN [Concomitant]
     Active Substance: ONDANSETRON HYDROCHLORIDE
  5. ZOLOFT [Concomitant]
     Active Substance: SERTRALINE HYDROCHLORIDE
  6. GABAPENTIN. [Concomitant]
     Active Substance: GABAPENTIN
  7. SODIUM CHLORIDE. [Concomitant]
     Active Substance: SODIUM CHLORIDE
  8. EPIPEN [Concomitant]
     Active Substance: EPINEPHRINE
  9. MIRTAZAPINE. [Concomitant]
     Active Substance: MIRTAZAPINE
  10. BERINERT [Suspect]
     Active Substance: HUMAN C1-ESTERASE INHIBITOR
     Indication: HEREDITARY ANGIOEDEMA
     Route: 042
  11. OMEPRAZOLE. [Concomitant]
     Active Substance: OMEPRAZOLE
  12. CINRYZE [Concomitant]
     Active Substance: HUMAN C1-ESTERASE INHIBITOR
  13. RANITIDINE. [Concomitant]
     Active Substance: RANITIDINE
  14. STERILE WATER [Concomitant]
     Active Substance: WATER
  15. DANAZOL. [Concomitant]
     Active Substance: DANAZOL
  16. ACETAMINOPHEN. [Concomitant]
     Active Substance: ACETAMINOPHEN
  17. CIMETIDINE [Concomitant]
     Active Substance: CIMETIDINE
  18. TRAMADOL. [Concomitant]
     Active Substance: TRAMADOL
  19. TAGAMET [Concomitant]
     Active Substance: CIMETIDINE
  20. PERCOCET [Concomitant]
     Active Substance: ACETAMINOPHEN\OXYCODONE HYDROCHLORIDE
  21. IBUPROFEN. [Concomitant]
     Active Substance: IBUPROFEN

REACTIONS (1)
  - Thrombosis [Unknown]
